FAERS Safety Report 11034648 (Version 2)
Quarter: 2015Q2

REPORT INFORMATION
  Report Type: Spontaneous
  Country: US (occurrence: US)
  Receive Date: 20150415
  Receipt Date: 20150525
  Transmission Date: 20150821
  Serious: No
  Sender: FDA-Public Use
  Company Number: US-JNJFOC-20130516601

PATIENT
  Age: 71 Year
  Sex: Female
  Weight: 87.54 kg

DRUGS (12)
  1. LOPRESSOR [Suspect]
     Active Substance: METOPROLOL TARTRATE
     Indication: BLOOD PRESSURE DECREASED
     Route: 048
     Dates: start: 20130227, end: 20130515
  2. LOPRESSOR [Suspect]
     Active Substance: METOPROLOL TARTRATE
     Indication: HEART RATE DECREASED
     Route: 048
     Dates: start: 20130130, end: 20130227
  3. BENICAR [Concomitant]
     Active Substance: OLMESARTAN MEDOXOMIL
     Indication: BLOOD PRESSURE
     Route: 048
     Dates: start: 1998
  4. LOPRESSOR [Suspect]
     Active Substance: METOPROLOL TARTRATE
     Indication: HEART RATE DECREASED
     Route: 048
     Dates: start: 20130227, end: 20130515
  5. LOPRESSOR [Suspect]
     Active Substance: METOPROLOL TARTRATE
     Indication: HEART RATE DECREASED
     Route: 048
     Dates: start: 20130515, end: 20130520
  6. PRAVASTATIN [Concomitant]
     Active Substance: PRAVASTATIN\PRAVASTATIN SODIUM
     Indication: BLOOD CHOLESTEROL
     Route: 048
     Dates: start: 20130301, end: 20130501
  7. XARELTO [Suspect]
     Active Substance: RIVAROXABAN
     Indication: CEREBROVASCULAR ACCIDENT PROPHYLAXIS
     Route: 048
     Dates: start: 201301
  8. LOPRESSOR [Suspect]
     Active Substance: METOPROLOL TARTRATE
     Indication: BLOOD PRESSURE DECREASED
     Route: 048
     Dates: start: 20130515, end: 20130520
  9. LOPRESSOR [Suspect]
     Active Substance: METOPROLOL TARTRATE
     Indication: BLOOD PRESSURE DECREASED
     Route: 048
     Dates: start: 20130130, end: 20130227
  10. LOPRESSOR [Suspect]
     Active Substance: METOPROLOL TARTRATE
     Indication: HEART RATE DECREASED
     Route: 048
     Dates: start: 20130520
  11. LOPRESSOR [Suspect]
     Active Substance: METOPROLOL TARTRATE
     Indication: BLOOD PRESSURE DECREASED
     Route: 048
     Dates: start: 20130520
  12. XARELTO [Suspect]
     Active Substance: RIVAROXABAN
     Indication: ATRIAL FIBRILLATION
     Route: 048
     Dates: start: 201301

REACTIONS (4)
  - Hypoaesthesia [Not Recovered/Not Resolved]
  - Peripheral swelling [Recovered/Resolved]
  - Paraesthesia [Not Recovered/Not Resolved]
  - Pain [Not Recovered/Not Resolved]

NARRATIVE: CASE EVENT DATE: 20130415
